FAERS Safety Report 5163799-5 (Version None)
Quarter: 2006Q4

REPORT INFORMATION
  Report Type: 
  Country: None (occurrence: None)
  Receive Date: 20061124
  Receipt Date: 20061109
  Transmission Date: 20070319
  Serious: Yes (Other)
  Sender: FDA-Public Use
  Company Number: 2006142774

PATIENT
  Age: 48 Year
  Sex: Male

DRUGS (1)
  1. BEXTRA [Suspect]
     Dosage: (20 MG)
     Dates: end: 20041120

REACTIONS (3)
  - CARDIOVASCULAR DISORDER [None]
  - CEREBROVASCULAR ACCIDENT [None]
  - INJURY [None]
